FAERS Safety Report 8771340 (Version 1)
Quarter: 2012Q4

REPORT INFORMATION
  Report Type: 
  Country: US (occurrence: US)
  Receive Date: 20120906
  Receipt Date: 20120906
  Transmission Date: 20130627
  Serious: Yes (Hospitalization)
  Sender: FDA-Public Use
  Company Number: US-GLAXOSMITHKLINE-A0845498A

PATIENT
  Age: 59 Year
  Sex: Male
  Weight: 97.7 kg

DRUGS (2)
  1. AVANDIA [Suspect]
     Indication: TYPE 2 DIABETES MELLITUS
     Dosage: 8MG Per day
     Route: 048
     Dates: start: 20050625, end: 20080818
  2. AVANDAMET [Suspect]
     Indication: TYPE 2 DIABETES MELLITUS
     Dosage: 1TAB Per day
     Route: 048
     Dates: start: 20040818, end: 20050325

REACTIONS (4)
  - Myocardial ischaemia [Unknown]
  - Blindness [Unknown]
  - Chest pain [Unknown]
  - Cerebral infarction [Unknown]
